FAERS Safety Report 9999601 (Version 3)
Quarter: 2014Q2

REPORT INFORMATION
  Report Type: Report from Study
  Country: GB (occurrence: GB)
  Receive Date: 20140312
  Receipt Date: 20140408
  Transmission Date: 20141212
  Serious: Yes (Other)
  Sender: FDA-Public Use
  Company Number: GB-SA-2014SA029053

PATIENT
  Age: 45 Year
  Sex: Female

DRUGS (4)
  1. LANTUS [Suspect]
     Indication: TYPE 2 DIABETES MELLITUS
     Route: 058
     Dates: start: 201402
  2. METFORMIN [Suspect]
     Indication: TYPE 2 DIABETES MELLITUS
     Route: 065
  3. SULFONAMIDES, UREA DERIVATIVES [Suspect]
     Indication: TYPE 2 DIABETES MELLITUS
     Route: 065
  4. ORAL ANTIDIABETICS [Suspect]
     Indication: TYPE 2 DIABETES MELLITUS
     Route: 065

REACTIONS (10)
  - Renal impairment [Unknown]
  - Diabetes mellitus inadequate control [Unknown]
  - Cardiovascular disorder [Unknown]
  - Dyslipidaemia [Unknown]
  - Hypercholesterolaemia [Unknown]
  - Hypertension [Unknown]
  - Movement disorder [Unknown]
  - Neuropathy peripheral [Unknown]
  - Obesity [Unknown]
  - Drug ineffective [Unknown]
